FAERS Safety Report 19701602 (Version 1)
Quarter: 2021Q3

REPORT INFORMATION
  Report Type: Spontaneous
  Country: AR (occurrence: AR)
  Receive Date: 20210813
  Receipt Date: 20210813
  Transmission Date: 20211014
  Serious: Yes (Other)
  Sender: FDA-Public Use
  Company Number: AR-ORGANON-O2107ARG000088

PATIENT
  Age: 19 Year
  Sex: Female

DRUGS (1)
  1. IMPLANON NXT [Suspect]
     Active Substance: ETONOGESTREL
     Dosage: 1 DOSAGE FORM, IMPLANT
     Route: 059
     Dates: start: 202104

REACTIONS (2)
  - Cat scratch disease [Unknown]
  - Bordetella infection [Unknown]

NARRATIVE: CASE EVENT DATE: 2021
